FAERS Safety Report 4475042-0 (Version None)
Quarter: 2004Q3

REPORT INFORMATION
  Report Type: 
  Country: None (occurrence: None)
  Receive Date: 20040923
  Receipt Date: 20040809
  Transmission Date: 20050211
  Serious: No
  Sender: FDA-Public Use
  Company Number: USA040874955

PATIENT
  Age: 76 Year
  Sex: Female

DRUGS (2)
  1. FORTEO [Suspect]
     Indication: OSTEOPOROSIS
     Dates: start: 20040201
  2. TYLENOL [Concomitant]

REACTIONS (3)
  - FAECES DISCOLOURED [None]
  - HAEMORRHAGE [None]
  - INTRA-ABDOMINAL HAEMORRHAGE [None]
